FAERS Safety Report 7232621-5 (Version None)
Quarter: 2011Q1

REPORT INFORMATION
  Report Type: 
  Country: None (occurrence: None)
  Receive Date: 20110112
  Receipt Date: 20110112
  Transmission Date: 20110831
  Serious: No
  Sender: FDA-Public Use
  Company Number: None

PATIENT
  Age: 53 Year
  Sex: Female
  Weight: 66.2252 kg

DRUGS (1)
  1. ALENDRONATE SODIUM [Suspect]
     Indication: OSTEOPENIA
     Dosage: ONE TABLET ONCE A WEEK PO
     Route: 048
     Dates: start: 20090715, end: 20101208

REACTIONS (4)
  - MUSCULOSKELETAL PAIN [None]
  - CARDIAC FIBRILLATION [None]
  - MUSCULOSKELETAL STIFFNESS [None]
  - BLOOD CHOLESTEROL INCREASED [None]
